FAERS Safety Report 10786120 (Version 2)
Quarter: 2015Q1

REPORT INFORMATION
  Report Type: Spontaneous
  Country: US (occurrence: US)
  Receive Date: 20150211
  Receipt Date: 20150305
  Transmission Date: 20150721
  Serious: Yes (Death)
  Sender: FDA-Public Use
  Company Number: US-CELGENE-USA-2015021576

PATIENT
  Age: 75 Year
  Sex: Female
  Weight: 72.64 kg

DRUGS (10)
  1. ADVAIR DISKUS [Concomitant]
     Active Substance: FLUTICASONE PROPIONATE\SALMETEROL XINAFOATE
     Indication: LUNG DISORDER
     Dosage: 250/20
     Route: 055
     Dates: start: 20100412
  2. CALCIUM [Concomitant]
     Active Substance: CALCIUM
     Indication: OSTEOPENIA
     Route: 065
  3. DILTIAZEM HCL [Concomitant]
     Active Substance: DILTIAZEM HYDROCHLORIDE
     Indication: HYPOTENSION
     Route: 048
     Dates: start: 20100322
  4. ENALAPRIL MALEATE. [Concomitant]
     Active Substance: ENALAPRIL MALEATE
     Indication: HYPOTENSION
     Dosage: 180 MILLIGRAM
     Route: 048
     Dates: start: 20110406
  5. FUROSEMIDE. [Concomitant]
     Active Substance: FUROSEMIDE
     Indication: HYPOTENSION
     Route: 048
     Dates: start: 20120530
  6. CALCIUM [Concomitant]
     Active Substance: CALCIUM
     Dosage: 600/200
     Route: 048
     Dates: start: 20081113
  7. FENTANYL. [Concomitant]
     Active Substance: FENTANYL
     Indication: PRODUCT USED FOR UNKNOWN INDICATION
     Route: 065
  8. OTEZLA [Suspect]
     Active Substance: APREMILAST
     Indication: PSORIATIC ARTHROPATHY
     Dosage: 60 MILLIGRAM
     Route: 048
     Dates: start: 20140519, end: 20150205
  9. FLUTICASONE PROPIONATE. [Concomitant]
     Active Substance: FLUTICASONE PROPIONATE
     Indication: RHINITIS
     Dosage: 2 SPRAYS/NOSTRIL
     Route: 065
     Dates: start: 20141014
  10. ESTRADIOL. [Concomitant]
     Active Substance: ESTRADIOL
     Indication: OVARIAN FAILURE POSTOPERATIVE
     Dosage: 2.5 MILLIGRAM
     Route: 048
     Dates: start: 20090216

REACTIONS (3)
  - Diabetes mellitus [Fatal]
  - Pneumonia [Fatal]
  - Cardiac failure [Fatal]

NARRATIVE: CASE EVENT DATE: 20150205
